FAERS Safety Report 6345579-8 (Version None)
Quarter: 2009Q3

REPORT INFORMATION
  Report Type: 
  Country: None (occurrence: None)
  Receive Date: 20090909
  Receipt Date: 20090824
  Transmission Date: 20100115
  Serious: Yes (Death)
  Sender: FDA-Public Use
  Company Number: US-ASTRAZENECA-2009UW19007

PATIENT
  Age: 18561 Day
  Sex: Male

DRUGS (11)
  1. DIPRIVAN [Suspect]
     Indication: INSOMNIA
     Route: 041
  2. DIPRIVAN [Suspect]
     Route: 041
     Dates: start: 20090623, end: 20090623
  3. DIPRIVAN [Suspect]
     Route: 041
     Dates: start: 20090625, end: 20090625
  4. XYLOCAINE [Suspect]
     Indication: ANALGESIA
     Dosage: MIXED WITH PROPOFOL
     Dates: start: 20090625, end: 20090625
  5. LOREZEPAM [Suspect]
     Indication: INSOMNIA
     Route: 042
     Dates: start: 20090623, end: 20090624
  6. LOREZEPAM [Suspect]
     Route: 042
     Dates: start: 20090625, end: 20090625
  7. LOREZEPAM [Suspect]
     Route: 042
     Dates: start: 20090625, end: 20090625
  8. DIAZEPAM [Suspect]
     Indication: INSOMNIA
     Route: 048
     Dates: start: 20090625, end: 20090625
  9. MIDAZOLAM HYDROCHLORIDE [Suspect]
     Indication: INSOMNIA
     Route: 042
     Dates: start: 20090623, end: 20090624
  10. MIDAZOLAM HYDROCHLORIDE [Suspect]
     Route: 042
     Dates: start: 20090625, end: 20090625
  11. MIDAZOLAM HYDROCHLORIDE [Suspect]
     Route: 042
     Dates: start: 20090625, end: 20090625

REACTIONS (5)
  - CARDIAC ARREST [None]
  - DEATH [None]
  - DRUG TOXICITY [None]
  - OVERDOSE [None]
  - RESPIRATORY ARREST [None]
